FAERS Safety Report 16798817 (Version 1)
Quarter: 2019Q4

REPORT INFORMATION
  Report Type: Spontaneous
  Country: US (occurrence: US)
  Receive Date: 20190911
  Receipt Date: 20190911
  Transmission Date: 20200122
  Serious: Yes (Hospitalization)
  Sender: FDA-Public Use
  Company Number: None

PATIENT
  Age: 36 Year
  Sex: Female
  Weight: 67.5 kg

DRUGS (3)
  1. XANAX [Concomitant]
     Active Substance: ALPRAZOLAM
  2. ASPIRIN. [Concomitant]
     Active Substance: ASPIRIN
  3. EMGALITY [Suspect]
     Active Substance: GALCANEZUMAB-GNLM
     Indication: HEADACHE
     Dosage: ?          QUANTITY:1 INJECTION(S);OTHER FREQUENCY:ONCE MONTHLY;?
     Route: 058
     Dates: start: 20190824, end: 20190825

REACTIONS (13)
  - Anxiety [None]
  - Headache [None]
  - Hot flush [None]
  - Abdominal pain upper [None]
  - Nausea [None]
  - Paraesthesia [None]
  - Constipation [None]
  - Back pain [None]
  - Visual impairment [None]
  - Cerebrovascular accident [None]
  - Insomnia [None]
  - Panic attack [None]
  - Hypoaesthesia [None]

NARRATIVE: CASE EVENT DATE: 20190902
